FAERS Safety Report 17294364 (Version 1)
Quarter: 2020Q1

REPORT INFORMATION
  Report Type: Spontaneous
  Country: US (occurrence: US)
  Receive Date: 20200102
  Receipt Date: 20200102
  Transmission Date: 20200409
  Serious: No
  Sender: FDA-Public Use
  Company Number: None

PATIENT
  Age: 49 Year
  Sex: Female

DRUGS (1)
  1. XELODA [Suspect]
     Active Substance: CAPECITABINE

REACTIONS (9)
  - Abdominal distension [None]
  - Nausea [None]
  - Infrequent bowel movements [None]
  - Nutritional condition abnormal [None]
  - Diarrhoea [None]
  - Asthenia [None]
  - Brain neoplasm [None]
  - Product use complaint [None]
  - Retching [None]

NARRATIVE: CASE EVENT DATE: 20191231
